FAERS Safety Report 8816302 (Version 1)
Quarter: 2012Q4

REPORT INFORMATION
  Report Type: Spontaneous
  Country: US (occurrence: None)
  Receive Date: 20120928
  Receipt Date: 20120928
  Transmission Date: 20130627
  Serious: Yes (Life-Threatening, Hospitalization)
  Sender: FDA-Public Use
  Company Number: None

PATIENT
  Age: 56 Year
  Sex: Female
  Weight: 79.2 kg

DRUGS (2)
  1. PEGINTERFERON [Suspect]
     Indication: HEPATITIS C
     Route: 058
     Dates: start: 20120812, end: 20120831
  2. RIBAVIRIN [Suspect]
     Route: 048
     Dates: start: 20120812, end: 20120831

REACTIONS (12)
  - Chills [None]
  - Pyrexia [None]
  - Confusional state [None]
  - Dizziness [None]
  - Fall [None]
  - Dyspnoea [None]
  - Hypoxia [None]
  - Respiratory failure [None]
  - Pulmonary toxicity [None]
  - Acute respiratory distress syndrome [None]
  - Syncope [None]
  - Influenza like illness [None]
